FAERS Safety Report 4314993-4 (Version None)
Quarter: 2004Q1

REPORT INFORMATION
  Report Type: 
  Country: None (occurrence: None)
  Receive Date: 20040309
  Receipt Date: 20040224
  Transmission Date: 20041129
  Serious: Yes (Hospitalization)
  Sender: FDA-Public Use
  Company Number: US-JNJFOC-20040205962

PATIENT
  Age: 73 Year
  Sex: Male

DRUGS (12)
  1. INFLIXIMAB (INFLIXIMAB, RECOMBINANT) LYOPHILIZED POWDER [Suspect]
     Indication: RHEUMATOID ARTHRITIS
     Dosage: INTRAVENOUS
     Route: 042
     Dates: start: 20010102, end: 20030903
  2. ASPIRIN [Concomitant]
  3. FOSAMAX [Concomitant]
  4. METHOTREXATE [Concomitant]
  5. CARDIZEM [Concomitant]
  6. BUMEX [Concomitant]
  7. NITROGLYCERIN [Concomitant]
  8. AMITRIPTYLINE HCL [Concomitant]
  9. KLOR-CON [Concomitant]
  10. VITAMIN C (ASCORBIC ACID) [Concomitant]
  11. VITAMIN D [Concomitant]
  12. VITAMIN E [Concomitant]

REACTIONS (2)
  - CYSTITIS [None]
  - PROSTATIC OPERATION [None]
